FAERS Safety Report 4423807-3 (Version None)
Quarter: 2004Q3

REPORT INFORMATION
  Report Type: 
  Country: None (occurrence: None)
  Receive Date: 20040715
  Receipt Date: 20030819
  Transmission Date: 20050211
  Serious: Yes (Other)
  Sender: FDA-Public Use
  Company Number: US-JNJFOC-20040505845

PATIENT
  Age: 39 Year
  Sex: Female

DRUGS (3)
  1. MOTRIN IB [Suspect]
     Indication: HEADACHE
     Dosage: 400 MG, 1 IN 1 DAY, ORAL
     Route: 048
  2. ALLEGRA [Concomitant]
  3. EXTRA STRENGTH TYLENOL PRODUCT (ACETAMINOPHEN) [Concomitant]

REACTIONS (2)
  - SWELLING FACE [None]
  - URTICARIA [None]
